FAERS Safety Report 6309846-6 (Version None)
Quarter: 2009Q3

REPORT INFORMATION
  Report Type: 
  Country: None (occurrence: None)
  Receive Date: 20090814
  Receipt Date: 20090804
  Transmission Date: 20100115
  Serious: Yes (Other)
  Sender: FDA-Public Use
  Company Number: DE-ELI_LILLY_AND_COMPANY-DE200907005109

PATIENT
  Age: 20 Year
  Sex: Male

DRUGS (7)
  1. ZYPADHERA [Suspect]
     Indication: SCHIZOPHRENIA
     Dosage: 210 MG, MONTHLY (1/M) (BETWEEN 210 MG AND 330 MG EVERY 4 WEEKS
     Route: 030
     Dates: start: 20060801
  2. ZYPADHERA [Suspect]
     Dosage: 300 MG, MONTHLY (1/M) (BETWEEN 210 MG AND 300 MG EVERY 4 WEEKS
     Route: 030
     Dates: end: 20070401
  3. ZYPADHERA [Suspect]
     Dosage: 300 MG, MONTHLY (1/M)
     Route: 030
     Dates: start: 20090424, end: 20090721
  4. ZYPADHERA [Suspect]
     Dosage: 240 MG, WEEKLY (1/W)
  5. ZYPREXA [Suspect]
     Indication: SCHIZOPHRENIA
     Route: 048
  6. ZYPREXA [Suspect]
     Dosage: 5 MG, UNK
     Route: 048
     Dates: start: 20090301
  7. ZYPREXA [Suspect]
     Dosage: 10 MG, UNK
     Route: 048

REACTIONS (22)
  - ANXIETY [None]
  - ATAXIA [None]
  - BLOOD POTASSIUM DECREASED [None]
  - CONFUSIONAL STATE [None]
  - DELIRIUM [None]
  - DEPRESSED LEVEL OF CONSCIOUSNESS [None]
  - DISTURBANCE IN ATTENTION [None]
  - DYSARTHRIA [None]
  - DYSKINESIA [None]
  - DYSPHORIA [None]
  - FATIGUE [None]
  - HALLUCINATION, VISUAL [None]
  - LYMPHOCYTE COUNT DECREASED [None]
  - MEMORY IMPAIRMENT [None]
  - MUSCLE SPASMS [None]
  - PLATELET COUNT DECREASED [None]
  - POOR QUALITY SLEEP [None]
  - RESTLESSNESS [None]
  - SEDATION [None]
  - SOMNOLENCE [None]
  - SUSPICIOUSNESS [None]
  - WHITE BLOOD CELL COUNT DECREASED [None]
